FAERS Safety Report 8875698 (Version 1)
Quarter: 2012Q4

REPORT INFORMATION
  Report Type: 
  Country: MX (occurrence: MX)
  Receive Date: 20121030
  Receipt Date: 20121030
  Transmission Date: 20130627
  Serious: Yes (Other)
  Sender: FDA-Public Use
  Company Number: PHHY2012MX097961

PATIENT
  Sex: Male

DRUGS (1)
  1. ACLASTA [Suspect]
     Indication: BONE DECALCIFICATION
     Dosage: 5 mg, per year
     Route: 042
     Dates: start: 201107

REACTIONS (2)
  - Poor peripheral circulation [Unknown]
  - Bone decalcification [Unknown]
